FAERS Safety Report 4352977-0 (Version None)
Quarter: 2004Q2

REPORT INFORMATION
  Report Type: 
  Country: None (occurrence: None)
  Receive Date: 20040429
  Receipt Date: 20040416
  Transmission Date: 20050107
  Serious: Yes (Life-Threatening)
  Sender: FDA-Public Use
  Company Number: 2004015554

PATIENT
  Age: 77 Year
  Sex: Female
  Weight: 80 kg

DRUGS (3)
  1. ZITHROMAX [Suspect]
     Indication: RESPIRATORY TRACT INFECTION
     Dosage: 500 MG (ONE TIME), ORAL
     Route: 048
     Dates: start: 20031101, end: 20031101
  2. BROMAZEPAM (BROMAZEPAM) [Concomitant]
  3. MONOPLUS (HYDROCHLOROTHIAZIDE, FOSINOPRIL) [Concomitant]

REACTIONS (3)
  - ANAPHYLACTIC SHOCK [None]
  - RASH ERYTHEMATOUS [None]
  - RENAL FAILURE ACUTE [None]
